FAERS Safety Report 7805655-7 (Version None)
Quarter: 2011Q4

REPORT INFORMATION
  Report Type: 
  Country: None (occurrence: None)
  Receive Date: 20111010
  Receipt Date: 20111005
  Transmission Date: 20120403
  Serious: Yes (Death)
  Sender: FDA-Public Use
  Company Number: DE-BRISTOL-MYERS SQUIBB COMPANY-16132375

PATIENT

DRUGS (1)
  1. YERVOY [Suspect]
     Indication: MALIGNANT MELANOMA

REACTIONS (1)
  - BLAST CELL PROLIFERATION [None]
